FAERS Safety Report 26173921 (Version 1)
Quarter: 2025Q4

REPORT INFORMATION
  Report Type: Spontaneous
  Country: US (occurrence: US)
  Receive Date: 20251218
  Receipt Date: 20251218
  Transmission Date: 20260117
  Serious: Yes (Hospitalization, Other)
  Sender: RANBAXY
  Company Number: US-SUN PHARMACEUTICAL INDUSTRIES LTD-2025R1-542373

PATIENT
  Age: 57 Year
  Sex: Female

DRUGS (2)
  1. LAMOTRIGINE [Suspect]
     Active Substance: LAMOTRIGINE
     Indication: Epilepsy
     Dosage: UNK
     Route: 065
  2. ANASTROZOLE [Suspect]
     Active Substance: ANASTROZOLE
     Indication: Intraductal proliferative breast lesion
     Dosage: UNK
     Route: 065

REACTIONS (1)
  - Erythema [Recovering/Resolving]
